FAERS Safety Report 22694701 (Version 3)
Quarter: 2024Q2

REPORT INFORMATION
  Report Type: Report from Study
  Country: DE (occurrence: DE)
  Receive Date: 20230712
  Receipt Date: 20240603
  Transmission Date: 20240716
  Serious: Yes (Other)
  Sender: FDA-Public Use
  Company Number: DE-ABBVIE-4697795

PATIENT
  Age: 66 Year
  Sex: Female
  Weight: 90 kg

DRUGS (16)
  1. RINVOQ [Suspect]
     Active Substance: UPADACITINIB
     Indication: Rheumatoid arthritis
     Route: 048
     Dates: start: 20220315, end: 20230316
  2. CRESOL\UREA [Concomitant]
     Active Substance: CRESOL\UREA
     Indication: Psoriasis
     Route: 062
     Dates: start: 20190117
  3. CHOLECALCIFEROL [Concomitant]
     Active Substance: CHOLECALCIFEROL
     Indication: Prophylaxis
     Route: 048
     Dates: start: 20170919
  4. METAMIZOLE [Concomitant]
     Active Substance: METAMIZOLE
     Indication: COVID-19
     Dosage: TIME INTERVAL: 0.33333333 DAYS
     Route: 048
     Dates: start: 20221008, end: 20221022
  5. METAMIZOLE [Concomitant]
     Active Substance: METAMIZOLE
     Indication: COVID-19
     Dosage: TIME INTERVAL: 0.33333333 DAYS
     Route: 048
     Dates: start: 20221108, end: 20221123
  6. CELECOXIB [Concomitant]
     Active Substance: CELECOXIB
     Indication: Rheumatoid arthritis
     Route: 048
     Dates: start: 20220215
  7. TIOTROPIUM [Concomitant]
     Active Substance: TIOTROPIUM
     Indication: Chronic obstructive pulmonary disease
     Dosage: TIOTROPIUM KATION
     Route: 055
  8. ACETYLCYSTEINE [Concomitant]
     Active Substance: ACETYLCYSTEINE
     Indication: Bronchitis
     Route: 048
     Dates: start: 20221108, end: 20221123
  9. ACETYLCYSTEINE [Concomitant]
     Active Substance: ACETYLCYSTEINE
     Indication: Bronchitis
     Route: 048
     Dates: start: 20221008, end: 20221022
  10. TELMISARTAN [Concomitant]
     Active Substance: TELMISARTAN
     Indication: Hypertension
     Route: 048
     Dates: start: 20190117
  11. SOLIFENACIN [Concomitant]
     Active Substance: SOLIFENACIN
     Indication: Pollakiuria
     Route: 048
     Dates: start: 20180712
  12. METHOTREXATE [Concomitant]
     Active Substance: METHOTREXATE
     Indication: Rheumatoid arthritis
     Route: 058
     Dates: start: 20220215
  13. METAMIZOL [Concomitant]
     Active Substance: METAMIZOLE SODIUM
     Indication: Prophylaxis
     Route: 048
     Dates: start: 20190117
  14. FOLIC ACID [Concomitant]
     Active Substance: FOLIC ACID
     Indication: Rheumatoid arthritis
     Route: 048
     Dates: start: 20220215
  15. BROMHEXINE HYDROCHLORIDE [Concomitant]
     Active Substance: BROMHEXINE HYDROCHLORIDE
     Indication: Bronchitis
     Dosage: TIME INTERVAL: 0.33333333 DAYS
     Route: 048
     Dates: start: 20221008, end: 20221022
  16. BROMHEXINE HYDROCHLORIDE [Concomitant]
     Active Substance: BROMHEXINE HYDROCHLORIDE
     Indication: Bronchitis
     Dosage: TIME INTERVAL: 0.33333333 DAYS: 11 MILLIGRAM
     Route: 048
     Dates: start: 20221108, end: 20221123

REACTIONS (2)
  - Actinic keratosis [Unknown]
  - Cystitis [Recovered/Resolved]

NARRATIVE: CASE EVENT DATE: 20230316
